FAERS Safety Report 11909930 (Version 2)
Quarter: 2016Q1

REPORT INFORMATION
  Report Type: Spontaneous
  Country: US (occurrence: US)
  Receive Date: 20160112
  Receipt Date: 20160115
  Transmission Date: 20160526
  Serious: Yes (Death)
  Sender: FDA-Public Use
  Company Number: PHHY2016US001230

PATIENT
  Age: 18 Year
  Sex: Male

DRUGS (8)
  1. CYCLOPHOSPHAMIDE. [Suspect]
     Active Substance: CYCLOPHOSPHAMIDE
     Indication: B-CELL TYPE ACUTE LEUKAEMIA
     Route: 065
  2. DOXORUBICIN [Suspect]
     Active Substance: DOXORUBICIN
     Indication: B-CELL TYPE ACUTE LEUKAEMIA
     Route: 065
  3. PREDNISONE. [Suspect]
     Active Substance: PREDNISONE
     Indication: B-CELL TYPE ACUTE LEUKAEMIA
     Route: 065
  4. ETOPOSIDE. [Suspect]
     Active Substance: ETOPOSIDE
     Indication: B-CELL TYPE ACUTE LEUKAEMIA
     Route: 065
  5. BORTEZOMIB [Suspect]
     Active Substance: BORTEZOMIB
     Indication: B-CELL TYPE ACUTE LEUKAEMIA
     Route: 065
  6. BLINATUMOMAB [Suspect]
     Active Substance: BLINATUMOMAB
     Indication: B-CELL TYPE ACUTE LEUKAEMIA
     Route: 065
  7. OFATUMUMAB [Suspect]
     Active Substance: OFATUMUMAB
     Indication: B-CELL TYPE ACUTE LEUKAEMIA
     Route: 065
  8. VINCRISTINE [Suspect]
     Active Substance: VINCRISTINE
     Indication: B-CELL TYPE ACUTE LEUKAEMIA
     Route: 065

REACTIONS (1)
  - Bone marrow disorder [Fatal]
